FAERS Safety Report 13326552 (Version 1)
Quarter: 2017Q1

REPORT INFORMATION
  Report Type: Report from Study
  Country: CA (occurrence: CA)
  Receive Date: 20170311
  Receipt Date: 20170311
  Transmission Date: 20170428
  Serious: Yes (Hospitalization, Other)
  Sender: FDA-Public Use
  Company Number: CA-AMGEN-CANSL2015102001

PATIENT
  Age: 70 Year
  Sex: Female

DRUGS (13)
  1. VITAMIN D [Concomitant]
     Active Substance: CHOLECALCIFEROL
     Dosage: UNK
  2. VITAMIN B12 [Concomitant]
     Active Substance: CYANOCOBALAMIN
     Dosage: UNK
  3. PROLIA [Suspect]
     Active Substance: DENOSUMAB
     Indication: OSTEOPOROSIS POSTMENOPAUSAL
     Dosage: 60 MG/ML, UNK
     Route: 058
     Dates: start: 20130123
  4. CALCIUM [Concomitant]
     Active Substance: CALCIUM
     Dosage: UNK
  5. AMLODIPINE [Concomitant]
     Active Substance: AMLODIPINE BESYLATE
     Dosage: UNK
  6. PROLIA [Suspect]
     Active Substance: DENOSUMAB
     Dosage: UNK
     Route: 058
     Dates: start: 20170228
  7. ELTROXIN [Concomitant]
     Active Substance: LEVOTHYROXINE
     Dosage: UNK
  8. OLMETEC [Concomitant]
     Active Substance: OLMESARTAN MEDOXOMIL
  9. APO ROSUVASTATIN [Concomitant]
     Dosage: UNK
  10. BOTOX [Concomitant]
     Active Substance: ONABOTULINUMTOXINA
     Dosage: UNK
  11. LOSEC [Concomitant]
     Active Substance: OMEPRAZOLE
     Dosage: UNK
  12. OXYCODONE [Concomitant]
     Active Substance: OXYCODONE
     Dosage: UNK
  13. QUININE [Concomitant]
     Active Substance: QUININE
     Dosage: UNK

REACTIONS (11)
  - Arthropathy [Unknown]
  - Weight decreased [Unknown]
  - Knee arthroplasty [Unknown]
  - Abdominal pain upper [Unknown]
  - Cystitis [Not Recovered/Not Resolved]
  - Abdominal discomfort [Unknown]
  - Asthenia [Unknown]
  - Ankle fracture [Unknown]
  - Hiatus hernia [Unknown]
  - Gastritis [Unknown]
  - Fibula fracture [Unknown]

NARRATIVE: CASE EVENT DATE: 2015
